FAERS Safety Report 22182433 (Version 1)
Quarter: 2023Q2

REPORT INFORMATION
  Report Type: Spontaneous
  Country: US (occurrence: US)
  Receive Date: 20230406
  Receipt Date: 20230406
  Transmission Date: 20230721
  Serious: Yes (Other)
  Sender: FDA-Public Use
  Company Number: US-APIL-2310601US

PATIENT
  Sex: Male
  Weight: 81.64 kg

DRUGS (16)
  1. LINZESS [Suspect]
     Active Substance: LINACLOTIDE
     Indication: Irritable bowel syndrome
     Dosage: 145 ?G, QD
  2. LINZESS [Suspect]
     Active Substance: LINACLOTIDE
     Dosage: 72 ?G, QD
     Dates: start: 2020
  3. CARVEDILOL [Concomitant]
     Active Substance: CARVEDILOL
  4. ONDANSETRON [Concomitant]
     Active Substance: ONDANSETRON
  5. TAMSULOSIN [Concomitant]
     Active Substance: TAMSULOSIN
  6. ASPIRIN [Concomitant]
     Active Substance: ASPIRIN
  7. AMIODARONE [Concomitant]
     Active Substance: AMIODARONE
     Indication: Cardiac disorder
  8. SIMVASTATIN [Concomitant]
     Active Substance: SIMVASTATIN
     Indication: Blood cholesterol increased
  9. HYDROCODONE [Concomitant]
     Active Substance: HYDROCODONE
  10. LISINOPRIL [Concomitant]
     Active Substance: LISINOPRIL
  11. DICYCLOMINE [Concomitant]
     Active Substance: DICYCLOMINE HYDROCHLORIDE
  12. CHLORTHALIDONE [Concomitant]
     Active Substance: CHLORTHALIDONE
  13. AMOXICILLIN [Concomitant]
     Active Substance: AMOXICILLIN
  14. FAMOTIDINE [Concomitant]
     Active Substance: FAMOTIDINE
  15. PANTOPRAZOLE SODIUM [Concomitant]
     Active Substance: PANTOPRAZOLE SODIUM
  16. WARFARIN [Concomitant]
     Active Substance: WARFARIN

REACTIONS (3)
  - Prostate cancer [Not Recovered/Not Resolved]
  - Therapeutic product effect variable [Unknown]
  - Constipation [Not Recovered/Not Resolved]

NARRATIVE: CASE EVENT DATE: 20220801
